APPROVED DRUG PRODUCT: TRIENTINE HYDROCHLORIDE
Active Ingredient: TRIENTINE HYDROCHLORIDE
Strength: 250MG
Dosage Form/Route: CAPSULE;ORAL
Application: A211251 | Product #001 | TE Code: AB
Applicant: NAVINTA LLC
Approved: Jan 16, 2019 | RLD: No | RS: No | Type: RX